FAERS Safety Report 7893307-7 (Version None)
Quarter: 2011Q4

REPORT INFORMATION
  Report Type: 
  Country: None (occurrence: None)
  Receive Date: 20111104
  Receipt Date: 20111031
  Transmission Date: 20120403
  Serious: Yes (Other)
  Sender: FDA-Public Use
  Company Number: DK-PFIZER INC-2011266564

PATIENT
  Age: 61 Year
  Sex: Female

DRUGS (6)
  1. GENTAMICIN [Suspect]
     Indication: ANTIBIOTIC THERAPY
     Dates: start: 20080501
  2. MEROPENEM [Suspect]
     Indication: ANTIBIOTIC THERAPY
     Dates: start: 20080501
  3. DICLOXACILLIN [Suspect]
     Indication: ANTIBIOTIC THERAPY
     Dates: start: 20080101
  4. CLINDAMYCIN PHOSPHATE [Suspect]
     Indication: ANTIBIOTIC THERAPY
     Dosage: UNK
     Dates: start: 20080501
  5. KEFLEX [Suspect]
     Indication: ANTIBIOTIC THERAPY
     Dates: start: 20080501
  6. ZINACEF [Suspect]
     Indication: ANTIBIOTIC THERAPY
     Route: 042
     Dates: start: 20080101

REACTIONS (1)
  - LEUKOCYTOCLASTIC VASCULITIS [None]
